FAERS Safety Report 5020780-4 (Version None)
Quarter: 2006Q2

REPORT INFORMATION
  Report Type: 
  Country: None (occurrence: None)
  Receive Date: 20060608
  Receipt Date: 20060531
  Transmission Date: 20061013
  Serious: Yes (Other)
  Sender: FDA-Public Use
  Company Number: PHBS2006BR08142

PATIENT
  Age: 93 Year
  Sex: Female
  Weight: 55 kg

DRUGS (8)
  1. DIOVAN HCT [Suspect]
     Indication: HYPERTENSION
     Dosage: VALS 80 / HCT 12.5 MG/DAY
     Route: 048
  2. DIOVAN AMLO [Suspect]
     Indication: HYPERTENSION
     Dosage: VALS 160/ AMLO 5 MG/DAY
     Route: 048
     Dates: start: 20060530
  3. DIOVAN [Suspect]
     Indication: HYPERTENSION
     Dosage: 160 MG/DAY
  4. DIOVAN [Suspect]
     Dosage: 80 MG/DAY
  5. OMEPRAZOL [Concomitant]
     Dosage: 1 TABLET/DAY
     Route: 048
  6. PURAN T4 [Concomitant]
     Indication: HYPOTHYROIDISM
     Dosage: 1 TABLET/DAY
     Route: 048
  7. LASIX [Concomitant]
     Route: 048
  8. LEXAPRO [Concomitant]
     Indication: DEPRESSION
     Dosage: 1 TABLET/DAY
     Route: 048

REACTIONS (10)
  - AGITATION [None]
  - ANXIETY [None]
  - BREAST NEOPLASM [None]
  - CARDIAC FAILURE [None]
  - CEREBRAL INFARCTION [None]
  - CEREBROVASCULAR ACCIDENT [None]
  - DISCOMFORT [None]
  - DYSPNOEA [None]
  - FATIGUE [None]
  - MALIGNANT BREAST LUMP REMOVAL [None]
